FAERS Safety Report 20716951 (Version 2)
Quarter: 2022Q2

REPORT INFORMATION
  Report Type: Spontaneous
  Country: US (occurrence: US)
  Receive Date: 20220416
  Receipt Date: 20220419
  Transmission Date: 20220721
  Serious: No
  Sender: FDA-Public Use
  Company Number: US-JNJFOC-20220424186

PATIENT
  Age: 58 Year
  Sex: Male

DRUGS (1)
  1. MENS ROGAINE EXTRA STRENGTH [Suspect]
     Active Substance: MINOXIDIL
     Indication: Alopecia
     Dosage: HALF A CAPFUL BASED ON THE DOSING INSTRUCTION. ONE IN THE MORNING AND ONE IN THE AFTERNOON.
     Route: 065
     Dates: start: 202202

REACTIONS (2)
  - Alopecia [Unknown]
  - Drug ineffective [Unknown]
